FAERS Safety Report 24957582 (Version 1)
Quarter: 2025Q1

REPORT INFORMATION
  Report Type: Spontaneous
  Country: US (occurrence: US)
  Receive Date: 20250212
  Receipt Date: 20250212
  Transmission Date: 20250409
  Serious: Yes (Hospitalization)
  Sender: IPCA
  Company Number: US-IPCA LABORATORIES LIMITED-IPC-2025-US-000308

PATIENT

DRUGS (39)
  1. RISPERIDONE [Interacting]
     Active Substance: RISPERIDONE
     Indication: Product used for unknown indication
     Route: 065
  2. RISPERIDONE [Interacting]
     Active Substance: RISPERIDONE
     Route: 065
  3. RISPERIDONE [Interacting]
     Active Substance: RISPERIDONE
     Route: 065
  4. RISPERIDONE [Interacting]
     Active Substance: RISPERIDONE
     Route: 065
  5. RISPERIDONE [Interacting]
     Active Substance: RISPERIDONE
     Route: 065
  6. RISPERIDONE [Interacting]
     Active Substance: RISPERIDONE
     Route: 065
  7. RISPERIDONE [Interacting]
     Active Substance: RISPERIDONE
     Route: 065
  8. RISPERIDONE [Interacting]
     Active Substance: RISPERIDONE
     Route: 065
  9. RISPERIDONE [Interacting]
     Active Substance: RISPERIDONE
     Route: 065
  10. RISPERIDONE [Interacting]
     Active Substance: RISPERIDONE
     Route: 065
  11. RISPERIDONE [Interacting]
     Active Substance: RISPERIDONE
     Route: 065
  12. RISPERIDONE [Interacting]
     Active Substance: RISPERIDONE
     Route: 065
  13. RISPERIDONE [Interacting]
     Active Substance: RISPERIDONE
     Route: 065
  14. RISPERIDONE [Interacting]
     Active Substance: RISPERIDONE
     Route: 065
  15. METOPROLOL [Suspect]
     Active Substance: METOPROLOL
     Indication: Product used for unknown indication
     Route: 065
  16. CLOZAPINE [Interacting]
     Active Substance: CLOZAPINE
     Indication: Product used for unknown indication
     Route: 065
  17. CLOZAPINE [Interacting]
     Active Substance: CLOZAPINE
     Route: 065
  18. CLOZAPINE [Interacting]
     Active Substance: CLOZAPINE
     Route: 065
  19. CLOZAPINE [Interacting]
     Active Substance: CLOZAPINE
     Route: 065
  20. CLOZAPINE [Interacting]
     Active Substance: CLOZAPINE
     Route: 065
  21. CLOZAPINE [Interacting]
     Active Substance: CLOZAPINE
     Route: 065
  22. CLOZAPINE [Interacting]
     Active Substance: CLOZAPINE
     Route: 065
  23. CLOZAPINE [Interacting]
     Active Substance: CLOZAPINE
     Route: 065
  24. CLOZAPINE [Interacting]
     Active Substance: CLOZAPINE
     Route: 065
  25. CLOZAPINE [Interacting]
     Active Substance: CLOZAPINE
     Route: 065
  26. CLOZAPINE [Interacting]
     Active Substance: CLOZAPINE
     Route: 065
  27. CLOZAPINE [Interacting]
     Active Substance: CLOZAPINE
     Route: 065
  28. CLOZAPINE [Interacting]
     Active Substance: CLOZAPINE
     Route: 065
  29. CLOZAPINE [Interacting]
     Active Substance: CLOZAPINE
     Route: 065
  30. CLOZAPINE [Interacting]
     Active Substance: CLOZAPINE
     Route: 065
  31. CLOZAPINE [Interacting]
     Active Substance: CLOZAPINE
     Route: 065
  32. CLOZAPINE [Interacting]
     Active Substance: CLOZAPINE
     Route: 065
  33. CLOZAPINE [Interacting]
     Active Substance: CLOZAPINE
     Route: 065
  34. CLOZAPINE [Interacting]
     Active Substance: CLOZAPINE
     Route: 065
  35. CLOZAPINE [Interacting]
     Active Substance: CLOZAPINE
     Route: 065
  36. CLOZAPINE [Interacting]
     Active Substance: CLOZAPINE
     Route: 065
  37. CLOZAPINE [Interacting]
     Active Substance: CLOZAPINE
     Route: 065
  38. FLUOXETINE [Concomitant]
     Active Substance: FLUOXETINE HYDROCHLORIDE
     Indication: Product used for unknown indication
     Route: 065
  39. TRAZODONE [Concomitant]
     Active Substance: TRAZODONE HYDROCHLORIDE
     Indication: Product used for unknown indication
     Route: 065

REACTIONS (2)
  - Drug interaction [Unknown]
  - Orthostatic hypotension [Unknown]
